FAERS Safety Report 5146745-X (Version None)
Quarter: 2006Q4

REPORT INFORMATION
  Report Type: 
  Country: None (occurrence: None)
  Receive Date: 20061107
  Receipt Date: 20061107
  Transmission Date: 20070319
  Serious: Yes (Hospitalization)
  Sender: FDA-Public Use
  Company Number: None

PATIENT
  Sex: Female
  Weight: 95 kg

DRUGS (4)
  1. CETUXIMAB [Suspect]
     Indication: CHEMOTHERAPY
     Dosage: 500 MG/M2/IV Q 2 WKS
     Route: 042
     Dates: start: 20061013
  2. CETUXIMAB [Suspect]
     Indication: CHEMOTHERAPY
     Dosage: 500 MG/M2/IV Q 2 WKS
     Route: 042
     Dates: start: 20061027
  3. IRINOTECAN HCL [Suspect]
     Indication: CHEMOTHERAPY
     Dosage: 180 MG/M2 IV Q 2 WKS
     Route: 042
     Dates: start: 20061013
  4. IRINOTECAN HCL [Suspect]
     Indication: CHEMOTHERAPY
     Dosage: 180 MG/M2 IV Q 2 WKS
     Route: 042
     Dates: start: 20061027

REACTIONS (3)
  - DEHYDRATION [None]
  - FEBRILE NEUTROPENIA [None]
  - HYPOTENSION [None]
